FAERS Safety Report 24952597 (Version 3)
Quarter: 2025Q1

REPORT INFORMATION
  Report Type: Report from Study
  Country: US (occurrence: US)
  Receive Date: 20250210
  Receipt Date: 20250306
  Transmission Date: 20250409
  Serious: No
  Sender: ABBVIE
  Company Number: US-ABBVIE-6122827

PATIENT
  Sex: Female

DRUGS (1)
  1. HUMIRA [Suspect]
     Active Substance: ADALIMUMAB
     Indication: Uveitis
     Dosage: FORM STRENGTH: 40 MG,?CITRATE FREE
     Route: 058
     Dates: start: 20241223

REACTIONS (4)
  - Ocular discomfort [Unknown]
  - Visual impairment [Unknown]
  - Erythema [Not Recovered/Not Resolved]
  - Feeling hot [Unknown]
